FAERS Safety Report 10578431 (Version 2)
Quarter: 2014Q4

REPORT INFORMATION
  Report Type: Spontaneous
  Country: ES (occurrence: ES)
  Receive Date: 20141112
  Receipt Date: 20141126
  Transmission Date: 20150529
  Serious: Yes (Other)
  Sender: FDA-Public Use
  Company Number: ES-AUROBINDO-AUR-APL-2014-11831

PATIENT
  Age: 44 Year
  Sex: Female

DRUGS (1)
  1. TOPIRAMATE AUROBINDO 200MG FILM-COATED TABLETS [Suspect]
     Active Substance: TOPIRAMATE
     Indication: AFFECTIVE DISORDER
     Dosage: 100 MG, TWO TIMES A DAY
     Route: 065

REACTIONS (3)
  - Drug interaction [Unknown]
  - Drug ineffective [Unknown]
  - False positive investigation result [Recovered/Resolved]
